FAERS Safety Report 14506593 (Version 3)
Quarter: 2021Q3

REPORT INFORMATION
  Report Type: Spontaneous
  Country: US (occurrence: US)
  Receive Date: 20180208
  Receipt Date: 20210810
  Transmission Date: 20211014
  Serious: Yes (Hospitalization, Other)
  Sender: FDA-Public Use
  Company Number: US-009507513-1801USA014163

PATIENT
  Sex: Female

DRUGS (10)
  1. CELECOXIB. [Concomitant]
     Active Substance: CELECOXIB
  2. HYDROXYCHLOROQUINE SULFATE. [Concomitant]
     Active Substance: HYDROXYCHLOROQUINE SULFATE
  3. AMLODIPINE BESILATE [Concomitant]
     Active Substance: AMLODIPINE BESYLATE
  4. HYDROCODONE BITARTRATE;PARACETAMOL [Concomitant]
     Active Substance: ACETAMINOPHEN\HYDROCODONE BITARTRATE
  5. CITALOPRAM [Concomitant]
     Active Substance: CITALOPRAM HYDROBROMIDE
  6. VALSARTAN. [Concomitant]
     Active Substance: VALSARTAN
  7. COLECALCIFEROL [Concomitant]
     Active Substance: CHOLECALCIFEROL
  8. ZEPATIER [Suspect]
     Active Substance: ELBASVIR\GRAZOPREVIR
     Indication: HEPATITIS C
     Dosage: UNK, DAILLY
     Route: 048
     Dates: start: 20180109
  9. REBETOL [Suspect]
     Active Substance: RIBAVIRIN
     Dosage: 200 MG (3 TABLETS)
  10. OMEPRAZOLE. [Concomitant]
     Active Substance: OMEPRAZOLE

REACTIONS (11)
  - Abdominal discomfort [Unknown]
  - Tremor [Unknown]
  - Pyrexia [Unknown]
  - Lethargy [Unknown]
  - Anaemia [Unknown]
  - Fatigue [Unknown]
  - Adverse event [Unknown]
  - Rheumatoid arthritis [Unknown]
  - Arthralgia [Unknown]
  - Fatigue [Unknown]
  - Therapy non-responder [Unknown]

NARRATIVE: CASE EVENT DATE: 2018
